FAERS Safety Report 4624793-3 (Version None)
Quarter: 2005Q1

REPORT INFORMATION
  Report Type: 
  Country: None (occurrence: None)
  Receive Date: 20050107
  Receipt Date: 20040928
  Transmission Date: 20050727
  Serious: No
  Sender: FDA-Public Use
  Company Number: 235069K04USA

PATIENT
  Age: 46 Year
  Sex: Male

DRUGS (1)
  1. REBIF [Suspect]
     Indication: MULTIPLE SCLEROSIS
     Dosage: 44 MCG, 3 IN 1 WEEKS , NOT REPORTED
     Dates: start: 20040726, end: 20040901

REACTIONS (11)
  - ANXIETY [None]
  - ASTHENIA [None]
  - DIZZINESS [None]
  - EAR DISORDER [None]
  - FATIGUE [None]
  - FEELING ABNORMAL [None]
  - HYPOKINESIA [None]
  - INFLUENZA LIKE ILLNESS [None]
  - MUSCLE SPASMS [None]
  - MUSCULAR WEAKNESS [None]
  - PARAESTHESIA [None]
